FAERS Safety Report 8818333 (Version 1)
Quarter: 2012Q4

REPORT INFORMATION
  Report Type: 
  Country: US (occurrence: US)
  Receive Date: 20121001
  Receipt Date: 20121001
  Transmission Date: 20130627
  Serious: No
  Sender: FDA-Public Use
  Company Number: US-009507513-1209USA004813

PATIENT

DRUGS (8)
  1. JANUVIA [Suspect]
     Indication: DIABETES MELLITUS
     Dosage: 50 mg, qd
     Dates: start: 201206
  2. LEXAPRO [Suspect]
     Indication: DEPRESSION
     Dosage: 20 mg, UNK
     Route: 048
     Dates: start: 2007, end: 20120826
  3. LEXAPRO [Suspect]
     Dosage: 10 UNK, UNK
     Dates: start: 20120827
  4. LORAZEPAM [Concomitant]
     Indication: INSOMNIA
     Dosage: UNK
  5. METFORMIN [Concomitant]
     Indication: DIABETES MELLITUS
     Dosage: 500 mg, bid
  6. GLYBURIDE [Concomitant]
     Indication: DIABETES MELLITUS
     Dosage: 5 mg, UNK
  7. TRIMETHOPRIM [Concomitant]
     Indication: BLADDER CANCER
     Dosage: 100 mg, UNK
  8. SIMVASTATIN [Concomitant]
     Indication: BLOOD CHOLESTEROL INCREASED
     Dosage: UNK

REACTIONS (3)
  - Muscle twitching [Not Recovered/Not Resolved]
  - Insomnia [Not Recovered/Not Resolved]
  - Anxiety [Not Recovered/Not Resolved]
